FAERS Safety Report 6416039-0 (Version None)
Quarter: 2009Q4

REPORT INFORMATION
  Report Type: 
  Country: None (occurrence: None)
  Receive Date: 20091023
  Receipt Date: 20091013
  Transmission Date: 20100525
  Serious: Yes (Other)
  Sender: FDA-Public Use
  Company Number: 2007-03555

PATIENT
  Age: 56 Year
  Sex: Male
  Weight: 62 kg

DRUGS (9)
  1. VELCADE [Suspect]
     Dosage: 2.1 MG, INTRAVENOUS; 1.6 MG, INTRAVENOUS
     Route: 042
     Dates: start: 20070904, end: 20080523
  2. VELCADE [Suspect]
     Dosage: 2.1 MG, INTRAVENOUS; 1.6 MG, INTRAVENOUS
     Route: 042
     Dates: start: 20080610, end: 20080912
  3. DEXAMETHASONE [Concomitant]
  4. ITRACONAZOLE [Concomitant]
  5. SULFAMETHOXAZOLE AND TRIMETHOPRIM [Concomitant]
  6. FLOMOX (CEFCAPENE PIVOXIL HYDROCHLORIDE) [Concomitant]
  7. MUCOSTA (REBAMIPIDE) [Concomitant]
  8. LASIX [Concomitant]
  9. MAXIPIME [Concomitant]

REACTIONS (7)
  - BLOOD LACTATE DEHYDROGENASE INCREASED [None]
  - C-REACTIVE PROTEIN INCREASED [None]
  - CONSTIPATION [None]
  - CYTOMEGALOVIRUS TEST POSITIVE [None]
  - LUNG DISORDER [None]
  - PLATELET COUNT DECREASED [None]
  - UPPER RESPIRATORY TRACT INFLAMMATION [None]
